FAERS Safety Report 11982415 (Version 1)
Quarter: 2016Q1

REPORT INFORMATION
  Report Type: Spontaneous
  Country: US (occurrence: US)
  Receive Date: 20160201
  Receipt Date: 20160201
  Transmission Date: 20160526
  Serious: Yes (Hospitalization, Other)
  Sender: FDA-Public Use
  Company Number: US-ROCHE-1703303

PATIENT
  Sex: Female

DRUGS (1)
  1. CELLCEPT [Suspect]
     Active Substance: MYCOPHENOLATE MOFETIL\MYCOPHENOLATE MOFETIL HYDROCHLORIDE
     Indication: MYASTHENIA GRAVIS
     Route: 048

REACTIONS (5)
  - Oesophageal ulcer [Unknown]
  - Oesophageal oedema [Unknown]
  - Dysphagia [Unknown]
  - Oesophageal carcinoma [Unknown]
  - Gastrooesophageal reflux disease [Unknown]
